FAERS Safety Report 21018689 (Version 2)
Quarter: 2022Q3

REPORT INFORMATION
  Report Type: Spontaneous
  Country: JP (occurrence: JP)
  Receive Date: 20220628
  Receipt Date: 20220719
  Transmission Date: 20221027
  Serious: Yes (Hospitalization)
  Sender: FDA-Public Use
  Company Number: JP-BAYER-2022A086950

PATIENT
  Age: 65 Year
  Sex: Male

DRUGS (4)
  1. XARELTO [Suspect]
     Active Substance: RIVAROXABAN
     Indication: Atrial fibrillation
     Dosage: UNK
     Route: 048
     Dates: start: 20210310
  2. BISOPROLOL [Suspect]
     Active Substance: BISOPROLOL
  3. SPIRONOLACTONE [Suspect]
     Active Substance: SPIRONOLACTONE
  4. AZOSEMIDE [Suspect]
     Active Substance: AZOSEMIDE

REACTIONS (2)
  - Atrial tachycardia [Recovered/Resolved]
  - Palpitations [Recovered/Resolved]

NARRATIVE: CASE EVENT DATE: 20210831
